FAERS Safety Report 7737611-1 (Version None)
Quarter: 2011Q3

REPORT INFORMATION
  Report Type: 
  Country: None (occurrence: None)
  Receive Date: 20110908
  Receipt Date: 20110901
  Transmission Date: 20111222
  Serious: Yes (Other)
  Sender: FDA-Public Use
  Company Number: US-ELI_LILLY_AND_COMPANY-US201109000781

PATIENT
  Sex: Male

DRUGS (4)
  1. HUMALOG [Suspect]
     Indication: TYPE 2 DIABETES MELLITUS
     Dosage: 30 U, OTHER
     Dates: start: 20100101
  2. LANTUS [Concomitant]
     Dosage: UNK
  3. METFORMIN HCL [Concomitant]
     Dosage: UNK
  4. HUMALOG [Suspect]
     Dosage: 30 U, OTHER

REACTIONS (2)
  - EXPOSURE TO CONTAMINATED DEVICE [None]
  - TRANSMISSION OF AN INFECTIOUS AGENT VIA A MEDICINAL PRODUCT [None]
